FAERS Safety Report 8831799 (Version 1)
Quarter: 2012Q4

REPORT INFORMATION
  Report Type: 
  Country: US (occurrence: US)
  Receive Date: 20121009
  Receipt Date: 20121009
  Transmission Date: 20130627
  Serious: Yes (Other)
  Sender: FDA-Public Use
  Company Number: US-PFIZER INC-2012249418

PATIENT
  Sex: Male

DRUGS (2)
  1. LYRICA [Suspect]
     Dosage: 150 mg, 4x/day
     Route: 048
     Dates: start: 20120801, end: 20121006
  2. LYRICA [Suspect]
     Dosage: 300 mg, 2x/day
     Route: 048
     Dates: start: 20121006

REACTIONS (6)
  - VIIth nerve paralysis [Not Recovered/Not Resolved]
  - Disturbance in attention [Not Recovered/Not Resolved]
  - Dizziness [Not Recovered/Not Resolved]
  - Hypoaesthesia [Not Recovered/Not Resolved]
  - Dysarthria [Not Recovered/Not Resolved]
  - Apathy [Not Recovered/Not Resolved]
